FAERS Safety Report 9511235 (Version 1)
Quarter: 2013Q3

REPORT INFORMATION
  Report Type: Spontaneous
  Country: BR (occurrence: BR)
  Receive Date: 20130910
  Receipt Date: 20130910
  Transmission Date: 20140515
  Serious: Yes (Other)
  Sender: FDA-Public Use
  Company Number: BR-RANBAXY-2013R5-72771

PATIENT
  Age: 4 Year
  Sex: Male
  Weight: 25.3 kg

DRUGS (3)
  1. CEFUROXIME AXETIL [Suspect]
     Indication: EAR INFECTION
     Dosage: 15 ML, BID
     Route: 048
     Dates: start: 20130820, end: 20130824
  2. CEFUROXIME AXETIL [Suspect]
     Indication: PHARYNGITIS
  3. ALIVIUM [Concomitant]
     Indication: PYREXIA
     Dosage: UNK
     Route: 065

REACTIONS (3)
  - Drug ineffective [Unknown]
  - Pneumonia [Unknown]
  - Ear infection [Unknown]
